FAERS Safety Report 9140691 (Version 2)
Quarter: 2013Q1

REPORT INFORMATION
  Report Type: Spontaneous
  Country: JP (occurrence: JP)
  Receive Date: 20130305
  Receipt Date: 20130313
  Transmission Date: 20140127
  Serious: Yes (Death)
  Sender: FDA-Public Use
  Company Number: JP-GLAXOSMITHKLINE-B0872088A

PATIENT
  Age: 88 Year
  Sex: Female

DRUGS (21)
  1. SERETIDE [Suspect]
     Indication: ASTHMA
     Dosage: 500MCG TWICE PER DAY
     Route: 055
     Dates: start: 20130219, end: 20130223
  2. SERETIDE [Suspect]
     Indication: ASTHMA
     Route: 055
     Dates: end: 20130218
  3. BERAPROST SODIUM [Concomitant]
     Route: 048
  4. PAXIL [Concomitant]
     Route: 048
  5. SINGULAIR [Concomitant]
     Route: 048
  6. MIYA-BM [Concomitant]
     Route: 048
  7. SIGMART [Concomitant]
     Route: 065
  8. MEVALOTIN [Concomitant]
     Route: 048
  9. ZYLORIC [Concomitant]
     Route: 048
  10. FUROSEMIDE [Concomitant]
     Route: 048
  11. MAGMITT [Concomitant]
     Route: 048
  12. ARTIST [Concomitant]
     Route: 048
  13. CARDENALIN [Concomitant]
     Route: 048
  14. MYSLEE [Concomitant]
     Route: 048
  15. SELARA [Concomitant]
     Route: 048
  16. MEDICON [Concomitant]
     Route: 048
  17. MUCODYNE [Concomitant]
     Route: 048
  18. METHYCOBAL [Concomitant]
     Route: 065
  19. CLARITH [Concomitant]
     Route: 048
  20. HOKUNALIN [Concomitant]
     Route: 061
  21. MILLIS [Concomitant]
     Route: 061

REACTIONS (7)
  - Respiratory tract oedema [Fatal]
  - Respiratory failure [Fatal]
  - Cardiac failure [Fatal]
  - Pharyngeal oedema [Fatal]
  - Asthma [Fatal]
  - Asthma [Unknown]
  - Underdose [Unknown]
